FAERS Safety Report 5812482-9 (Version None)
Quarter: 2008Q3

REPORT INFORMATION
  Report Type: 
  Country: None (occurrence: None)
  Receive Date: 20080715
  Receipt Date: 20080715
  Transmission Date: 20090109
  Serious: Yes (Other)
  Sender: FDA-Public Use
  Company Number: None

PATIENT
  Sex: Female
  Weight: 107.0489 kg

DRUGS (1)
  1. HUMALOG [Suspect]
     Dosage: 30 UNIT AND 25 UNITS AM AND PM SQ
     Route: 058

REACTIONS (5)
  - BLOOD GLUCOSE INCREASED [None]
  - IMPAIRED HEALING [None]
  - INJECTION SITE REACTION [None]
  - PHARMACEUTICAL PRODUCT COMPLAINT [None]
  - SKIN LESION [None]
